FAERS Safety Report 11653365 (Version 1)
Quarter: 2015Q4

REPORT INFORMATION
  Report Type: Spontaneous
  Country: IT (occurrence: IT)
  Receive Date: 20151022
  Receipt Date: 20151022
  Transmission Date: 20160304
  Serious: Yes (Hospitalization)
  Sender: FDA-Public Use
  Company Number: IT-GUERBET LLC-1043282

PATIENT
  Age: 59 Year
  Sex: Male

DRUGS (6)
  1. CARDIOASPIRIN(ACETYLSALICYLIC ACID)(TABLETS) [Concomitant]
     Route: 048
  2. RAMIPRIL/HYDROCHLOROTHIAZIDE(HYDROCHLOROTHIAZIDE, RAMIPRIL [Concomitant]
     Route: 048
  3. AMLODIPINE [Concomitant]
     Active Substance: AMLODIPINE BESYLATE
     Route: 048
  4. DOTAREM [Suspect]
     Active Substance: GADOTERATE MEGLUMINE
     Indication: NUCLEAR MAGNETIC RESONANCE IMAGING
     Dates: start: 20151008, end: 20151008
  5. BUSCOPAN(HYOSCINE BUTYLBROMIDE) [Concomitant]
     Dates: start: 20151008, end: 20151008
  6. METFORMIN HYDROCHLORIDE. [Concomitant]
     Active Substance: METFORMIN HYDROCHLORIDE
     Route: 048

REACTIONS (5)
  - Dyspnoea [Recovered/Resolved]
  - Chest discomfort [Recovered/Resolved]
  - Erythema [Recovered/Resolved]
  - Incorrect route of drug administration [Recovered/Resolved]
  - Loss of consciousness [Recovered/Resolved]

NARRATIVE: CASE EVENT DATE: 20151008
